FAERS Safety Report 20461180 (Version 1)
Quarter: 2022Q1

REPORT INFORMATION
  Report Type: Spontaneous
  Country: US (occurrence: None)
  Receive Date: 20220210
  Receipt Date: 20220210
  Transmission Date: 20220423
  Serious: Yes (Other)
  Sender: FDA-Public Use
  Company Number: None

PATIENT
  Age: 49 Year
  Sex: Female
  Weight: 111.15 kg

DRUGS (1)
  1. EVUSHELD [Suspect]
     Active Substance: CILGAVIMAB\TIXAGEVIMAB
     Indication: COVID-19
     Route: 030
     Dates: start: 20220209, end: 20220209

REACTIONS (6)
  - Hyperhidrosis [None]
  - Paraesthesia [None]
  - Headache [None]
  - Tremor [None]
  - Palpitations [None]
  - Hypersensitivity [None]

NARRATIVE: CASE EVENT DATE: 20220209
